FAERS Safety Report 6461409-8 (Version None)
Quarter: 2009Q4

REPORT INFORMATION
  Report Type: 
  Country: None (occurrence: None)
  Receive Date: 20091123
  Receipt Date: 20091110
  Transmission Date: 20100525
  Serious: Yes (Hospitalization)
  Sender: FDA-Public Use
  Company Number: DE-1171528

PATIENT
  Sex: Male

DRUGS (1)
  1. FLUORESCEIN SODIUM (FLUORESCEIN SODIUM) [Suspect]
     Dosage: INTRAVENOUS BOLUS
     Route: 040

REACTIONS (5)
  - BLOOD GLUCOSE DECREASED [None]
  - COLD SWEAT [None]
  - INCONTINENCE [None]
  - MUSCLE SPASMS [None]
  - UNRESPONSIVE TO STIMULI [None]
